FAERS Safety Report 5914807-2 (Version None)
Quarter: 2008Q4

REPORT INFORMATION
  Report Type: 
  Country: None (occurrence: None)
  Receive Date: 20081008
  Receipt Date: 20081002
  Transmission Date: 20090506
  Serious: Yes (Hospitalization)
  Sender: FDA-Public Use
  Company Number: APP200800941

PATIENT
  Age: 47 Year
  Sex: Male

DRUGS (2)
  1. VANCOMYCIN HYDROCHLORIDE [Suspect]
     Indication: POSTOPERATIVE WOUND INFECTION
     Dosage: 1 GM, 1 IN 6 HR, INTRAVENOUS
     Route: 042
     Dates: start: 20080905, end: 20080915
  2. VANCOMYCIN HYDROCHLORIDE [Suspect]

REACTIONS (1)
  - STEVENS-JOHNSON SYNDROME [None]
